FAERS Safety Report 4740528-8 (Version None)
Quarter: 2005Q3

REPORT INFORMATION
  Report Type: 
  Country: None (occurrence: None)
  Receive Date: 20050808
  Receipt Date: 20050727
  Transmission Date: 20060218
  Serious: Yes (Other)
  Sender: FDA-Public Use
  Company Number: 2005106906

PATIENT
  Age: 27 Year
  Sex: Male
  Weight: 68.0396 kg

DRUGS (2)
  1. DRAMAMINE [Suspect]
     Indication: MOTION SICKNESS
     Dosage: 12 TABLETS ONCE, ORAL
     Route: 048
     Dates: start: 20050726, end: 20050726
  2. ETHANOL (ETHANOL) [Suspect]
     Dosage: FEW BEERS, ORAL
     Route: 048

REACTIONS (3)
  - HALLUCINATION, VISUAL [None]
  - INTENTIONAL MISUSE [None]
  - SOMNOLENCE [None]
